FAERS Safety Report 5450689-3 (Version None)
Quarter: 2007Q3

REPORT INFORMATION
  Report Type: 
  Country: None (occurrence: None)
  Receive Date: 20070910
  Receipt Date: 20070905
  Transmission Date: 20080115
  Serious: Yes (Other)
  Sender: FDA-Public Use
  Company Number: 2007330333

PATIENT
  Sex: Female

DRUGS (1)
  1. COOL MINT LISTERINE (MENTHOL, METHYL SALICYLATE, EUCALYPTOL, THYMOL) [Suspect]
     Indication: ALCOHOL POISONING
     Dosage: 2 CAPFULS ONCE, ORAL
     Route: 048
     Dates: start: 20070905, end: 20070905

REACTIONS (1)
  - INCORRECT ROUTE OF DRUG ADMINISTRATION [None]
